FAERS Safety Report 4284868-8 (Version None)
Quarter: 2004Q1

REPORT INFORMATION
  Report Type: 
  Country: None (occurrence: None)
  Receive Date: 20040202
  Receipt Date: 20040116
  Transmission Date: 20041129
  Serious: Yes (Death)
  Sender: FDA-Public Use
  Company Number: 430001L04JPN

PATIENT
  Age: 72 Year
  Sex: Female

DRUGS (2)
  1. NOVANTRONE [Suspect]
     Indication: MYELODYSPLASTIC SYNDROME
     Dosage: INTRAVENOUS
     Route: 042
  2. CYTARABINE [Suspect]
     Indication: MYELODYSPLASTIC SYNDROME

REACTIONS (5)
  - BLOOD PRESSURE INCREASED [None]
  - CONVULSION [None]
  - LEUKOENCEPHALOPATHY [None]
  - RENAL IMPAIRMENT [None]
  - RESPIRATORY ARREST [None]
